FAERS Safety Report 7010412-8 (Version None)
Quarter: 2010Q3

REPORT INFORMATION
  Report Type: 
  Country: None (occurrence: None)
  Receive Date: 20100923
  Receipt Date: 20100714
  Transmission Date: 20110219
  Serious: No
  Sender: FDA-Public Use
  Company Number: US-BAUSCH-2010BL003878

PATIENT
  Age: 81 Year
  Sex: Male

DRUGS (4)
  1. BESIVANCE [Suspect]
     Indication: ANTIBIOTIC PROPHYLAXIS
     Dates: start: 20100713, end: 20100714
  2. BESIVANCE [Suspect]
     Indication: OFF LABEL USE
     Dates: start: 20100713, end: 20100714
  3. LOTEMAX [Concomitant]
     Indication: CATARACT OPERATION
     Dates: start: 20100713
  4. XIBROM [Concomitant]
     Indication: CATARACT OPERATION
     Dates: start: 20100713

REACTIONS (1)
  - PYREXIA [None]
